FAERS Safety Report 18834423 (Version 2)
Quarter: 2021Q1

REPORT INFORMATION
  Report Type: Report from Study
  Country: US (occurrence: US)
  Receive Date: 20210203
  Receipt Date: 20210330
  Transmission Date: 20210419
  Serious: No
  Sender: FDA-Public Use
  Company Number: US-BIOVITRUM-2021US1136

PATIENT
  Sex: Male

DRUGS (2)
  1. MULTIVITAMIN CHILDRENS [Concomitant]
  2. SYNAGIS [Suspect]
     Active Substance: PALIVIZUMAB
     Indication: ANTIVIRAL PROPHYLAXIS
     Route: 030

REACTIONS (2)
  - Injection site pain [Unknown]
  - Product dose omission issue [Unknown]
